FAERS Safety Report 14150572 (Version 3)
Quarter: 2020Q3

REPORT INFORMATION
  Report Type: Report from Study
  Country: UA (occurrence: UA)
  Receive Date: 20171101
  Receipt Date: 20180104
  Transmission Date: 20201105
  Serious: Yes (Hospitalization)
  Sender: FDA-Public Use
  Company Number: UA-ASTRAZENECA-2017SF00886

PATIENT
  Age: 14788 Day
  Sex: Male

DRUGS (8)
  1. TREMELIMUMAB. [Suspect]
     Active Substance: TREMELIMUMAB
     Indication: SMALL CELL LUNG CANCER EXTENSIVE STAGE
     Dosage: 75 MG ONCE/SINGLE ADMINISTRATION
     Route: 042
     Dates: start: 20170823, end: 20170823
  2. DURVALUMAB. [Suspect]
     Active Substance: DURVALUMAB
     Indication: SMALL CELL LUNG CANCER EXTENSIVE STAGE
     Dosage: 1500 MG ONCE/SINGLE ADMISNISTRATION
     Route: 042
     Dates: start: 20170726, end: 20170726
  3. TREMELIMUMAB. [Suspect]
     Active Substance: TREMELIMUMAB
     Indication: SMALL CELL LUNG CANCER EXTENSIVE STAGE
     Dosage: 75 MG ONCE/SINGLE ADMINISTRATION
     Route: 042
     Dates: start: 20170726, end: 20170726
  4. DURVALUMAB. [Suspect]
     Active Substance: DURVALUMAB
     Indication: SMALL CELL LUNG CANCER EXTENSIVE STAGE
     Dosage: 1500 MG ONCE/SINGLE ADMISNISTRATION
     Route: 042
     Dates: start: 20170920, end: 20170920
  5. GLUTARGIN [Concomitant]
     Indication: ALANINE AMINOTRANSFERASE INCREASED
     Dosage: 0.75 MG THREE TIMES A DAY
     Route: 051
     Dates: start: 20170920, end: 20170930
  6. DURVALUMAB. [Suspect]
     Active Substance: DURVALUMAB
     Indication: SMALL CELL LUNG CANCER EXTENSIVE STAGE
     Dosage: 1500 MG ONCE/SINGLE ADMISNISTRATION
     Route: 042
     Dates: start: 20170823, end: 20170823
  7. TREMELIMUMAB. [Suspect]
     Active Substance: TREMELIMUMAB
     Indication: SMALL CELL LUNG CANCER EXTENSIVE STAGE
     Dosage: 75 MG ONCE/SINGLE ADMINISTRATION
     Route: 042
     Dates: start: 20170920, end: 20170920
  8. GLUTARGIN [Concomitant]
     Indication: BLOOD ALKALINE PHOSPHATASE INCREASED
     Dosage: 0.75 MG THREE TIMES A DAY
     Route: 051
     Dates: start: 20170920, end: 20170930

REACTIONS (1)
  - Myasthenic syndrome [Not Recovered/Not Resolved]

NARRATIVE: CASE EVENT DATE: 20171001
